FAERS Safety Report 6416077-8 (Version None)
Quarter: 2009Q4

REPORT INFORMATION
  Report Type: 
  Country: None (occurrence: None)
  Receive Date: 20091027
  Receipt Date: 20091016
  Transmission Date: 20100525
  Serious: Yes (Hospitalization)
  Sender: FDA-Public Use
  Company Number: NL-JNJFOC-20091000276

PATIENT
  Age: 45 Year
  Sex: Male
  Weight: 72 kg

DRUGS (8)
  1. REMICADE [Suspect]
     Indication: COLITIS ULCERATIVE
     Route: 042
     Dates: start: 20090227, end: 20090901
  2. ASCAL [Concomitant]
     Indication: ATRIAL FIBRILLATION
     Route: 048
  3. ASCAL [Concomitant]
     Indication: LEFT VENTRICULAR DYSFUNCTION
     Route: 048
  4. METOPROLOL [Concomitant]
     Route: 048
  5. PANTAZOL [Concomitant]
     Route: 048
  6. AZATHIOPRINE [Concomitant]
     Indication: COLITIS ULCERATIVE
     Route: 048
  7. PERINDOPRIL [Concomitant]
     Indication: AORTIC VALVE INCOMPETENCE
     Route: 048
  8. MESALAZINE [Concomitant]
     Indication: COLITIS ULCERATIVE
     Route: 048

REACTIONS (2)
  - DYSPHAGIA [None]
  - PYREXIA [None]
